FAERS Safety Report 5422937-7 (Version None)
Quarter: 2007Q3

REPORT INFORMATION
  Report Type: 
  Country: None (occurrence: None)
  Receive Date: 20070820
  Receipt Date: 20070813
  Transmission Date: 20080115
  Serious: Yes (Hospitalization)
  Sender: FDA-Public Use
  Company Number: 2007SP016557

PATIENT
  Age: 76 Year
  Sex: Female

DRUGS (2)
  1. TEMODAL [Suspect]
     Indication: GLIOBLASTOMA MULTIFORME
     Dosage: 100 MG; QD; PO
     Route: 048
     Dates: start: 20070627, end: 20070804
  2. PHENYTOIN [Suspect]
     Indication: CONVULSION
     Dosage: 2 GM; QD;

REACTIONS (1)
  - STEVENS-JOHNSON SYNDROME [None]
